FAERS Safety Report 7372619-X (Version None)
Quarter: 2011Q1

REPORT INFORMATION
  Report Type: 
  Country: None (occurrence: None)
  Receive Date: 20110324
  Receipt Date: 20110317
  Transmission Date: 20110831
  Serious: Yes (Other)
  Sender: FDA-Public Use
  Company Number: US-TEVA-272359USA

PATIENT
  Sex: Female

DRUGS (9)
  1. LEVOTHYROXINE SODIUM [Concomitant]
  2. METOPROLOL [Concomitant]
  3. TRAZODONE [Concomitant]
  4. DULOXETINE HYDROCHLORIDE [Concomitant]
  5. SALBUTAMOL [Concomitant]
  6. VENTRON [Concomitant]
  7. SERETIDE                           /01420901/ [Concomitant]
  8. COPAXONE [Suspect]
     Indication: MULTIPLE SCLEROSIS
     Route: 058
  9. FARNIO [Concomitant]

REACTIONS (2)
  - PULMONARY FIBROSIS [None]
  - DYSPNOEA [None]
